FAERS Safety Report 5873947-7 (Version None)
Quarter: 2008Q3

REPORT INFORMATION
  Report Type: 
  Country: None (occurrence: None)
  Receive Date: 20080905
  Receipt Date: 20080905
  Transmission Date: 20090109
  Serious: Yes (Hospitalization)
  Sender: FDA-Public Use
  Company Number: None

PATIENT
  Age: 61 Year
  Sex: Female
  Weight: 90.4 kg

DRUGS (13)
  1. BEVACIZUMAB 25MG/ML GENENTECH [Suspect]
     Indication: GLIOBLASTOMA MULTIFORME
     Dosage: 10MG/KG Q 2 WEEKS- IV DRIP
     Route: 041
     Dates: start: 20080529, end: 20080829
  2. HUMULIN 70/30 [Concomitant]
  3. INSULIN REGULAR SLIDING SCALE [Concomitant]
  4. CATAPRES [Concomitant]
  5. NEURONTIN [Concomitant]
  6. CLARITIN [Concomitant]
  7. LISINOPRIL [Concomitant]
  8. DECADRON SRC [Concomitant]
  9. PROVACHOL [Concomitant]
  10. PROTONIX [Concomitant]
  11. LOVENOX [Concomitant]
  12. TRAZODONE HCL [Concomitant]
  13. ZOFRAN [Concomitant]

REACTIONS (1)
  - GASTROINTESTINAL HAEMORRHAGE [None]
